FAERS Safety Report 9176126 (Version 4)
Quarter: 2012Q4

REPORT INFORMATION
  Report Type: 
  Country: US (occurrence: US)
  Receive Date: 20120919
  Receipt Date: 20121024
  Transmission Date: 20130627
  Serious: Yes (Other)
  Sender: FDA-Public Use
  Company Number: US-RB-043679-12

PATIENT
  Sex: Female

DRUGS (4)
  1. SUBOXONE FILM [Suspect]
     Indication: DRUG DEPENDENCE
     Dosage: Suboxone film
     Route: 064
     Dates: start: 201106, end: 20110816
  2. SUBUTEX [Suspect]
     Indication: DRUG DEPENDENCE
     Route: 064
     Dates: start: 20110817, end: 201202
  3. KLONOPIN [Suspect]
     Indication: ANXIETY
     Route: 064
     Dates: end: 2012
  4. NICOTINE [Suspect]
     Indication: NICOTINE DEPENDENCE
     Dosage: Dosing details unknwn
     Route: 064
     Dates: start: 201107, end: 2012

REACTIONS (2)
  - Premature baby [Recovered/Resolved]
  - Foetal exposure during pregnancy [Recovered/Resolved]
